FAERS Safety Report 14440469 (Version 1)
Quarter: 2018Q1

REPORT INFORMATION
  Report Type: Spontaneous
  Country: US (occurrence: US)
  Receive Date: 20180125
  Receipt Date: 20180125
  Transmission Date: 20180509
  Serious: No
  Sender: FDA-Public Use
  Company Number: US-ABBVIE-17K-163-1965406-00

PATIENT
  Age: 51 Year
  Sex: Female

DRUGS (2)
  1. HUMIRA [Suspect]
     Active Substance: ADALIMUMAB
     Indication: RHEUMATOID ARTHRITIS
     Dosage: SAMPLE PEN FOR ONE TIME
     Route: 058
     Dates: start: 201704, end: 201704
  2. HUMIRA [Suspect]
     Active Substance: ADALIMUMAB
     Route: 058
     Dates: start: 201705

REACTIONS (5)
  - Weight decreased [Unknown]
  - Panic attack [Unknown]
  - Panic attack [Unknown]
  - Device issue [Unknown]
  - Stress [Unknown]

NARRATIVE: CASE EVENT DATE: 2017
